FAERS Safety Report 20935361 (Version 2)
Quarter: 2022Q3

REPORT INFORMATION
  Report Type: Spontaneous
  Country: US (occurrence: None)
  Receive Date: 20220609
  Receipt Date: 20220713
  Transmission Date: 20221027
  Serious: No
  Sender: FDA-Public Use
  Company Number: 2022A181634

PATIENT
  Sex: Female
  Weight: 77.1 kg

DRUGS (3)
  1. SYMBICORT [Suspect]
     Active Substance: BUDESONIDE\FORMOTEROL FUMARATE DIHYDRATE
     Indication: Cough
     Dosage: 160/4.5 UG, 2 PUFFS TWICE DAILY
     Route: 055
     Dates: start: 20220506
  2. SYMBICORT [Suspect]
     Active Substance: BUDESONIDE\FORMOTEROL FUMARATE DIHYDRATE
     Indication: Drainage
     Dosage: 160/4.5 UG, 2 PUFFS TWICE DAILY
     Route: 055
     Dates: start: 20220506
  3. RYTARY [Concomitant]
     Active Substance: CARBIDOPA\LEVODOPA
     Indication: Parkinson^s disease

REACTIONS (11)
  - Cough [Unknown]
  - Aphonia [Unknown]
  - Oropharyngeal discomfort [Unknown]
  - Drug effect less than expected [Unknown]
  - Device use issue [Unknown]
  - Incorrect dose administered by device [Unknown]
  - Product dose omission issue [Unknown]
  - Accidental overdose [Unknown]
  - Wrong technique in device usage process [Unknown]
  - Off label use [Unknown]
  - Device malfunction [Unknown]
